FAERS Safety Report 25945631 (Version 3)
Quarter: 2025Q4

REPORT INFORMATION
  Report Type: Spontaneous
  Country: EU (occurrence: EU)
  Receive Date: 20251021
  Receipt Date: 20251211
  Transmission Date: 20260117
  Serious: Yes (Life-Threatening, Hospitalization)
  Sender: ELI LILLY AND COMPANY
  Company Number: None

PATIENT
  Age: 40 Year
  Sex: Male

DRUGS (4)
  1. TADALAFIL [Suspect]
     Active Substance: TADALAFIL
     Indication: Product used for unknown indication
     Dosage: UNK, UNKNOWN (REGULAR CONSUMPTION)
     Route: 048
  2. OXYBATE [Suspect]
     Active Substance: OXYBATE
     Indication: Product used for unknown indication
     Dosage: UNK, UNKNOWN (REGULAR CONSUMPTION)
     Route: 048
  3. COCAINE [Suspect]
     Active Substance: COCAINE
     Indication: Product used for unknown indication
     Dosage: UNK, UNKNOWN (REGULAR CONSUMPTION OR USE)
     Route: 045
  4. ALCOHOL [Suspect]
     Active Substance: ALCOHOL
     Indication: Product used for unknown indication
     Dosage: UNK, UNKNOWN (11US/J)
     Route: 048

REACTIONS (9)
  - Drug abuse [Recovering/Resolving]
  - Coma [Recovered/Resolved]
  - Generalised tonic-clonic seizure [Recovered/Resolved]
  - Pneumonia aspiration [Recovered/Resolved]
  - Confusional state [Recovered/Resolved]
  - Agitation [Recovered/Resolved]
  - Performance enhancing product use [Recovering/Resolving]
  - High risk sexual behaviour [Recovering/Resolving]
  - Syphilis [Recovering/Resolving]

NARRATIVE: CASE EVENT DATE: 20210101
